FAERS Safety Report 9861753 (Version 1)
Quarter: 2014Q1

REPORT INFORMATION
  Report Type: Spontaneous
  Country: US (occurrence: None)
  Receive Date: 20140131
  Receipt Date: 20140131
  Transmission Date: 20141002
  Serious: No
  Sender: FDA-Public Use
  Company Number: None

PATIENT
  Sex: 0

DRUGS (5)
  1. FENTANYL CITRATE [Suspect]
     Indication: LABOUR PAIN
     Dates: start: 20140128, end: 20140129
  2. FENTANYL CITRATE PF [Concomitant]
  3. IBUPROFEN (MOTRIN) [Concomitant]
  4. LACTATED RINGERS (LR) [Concomitant]
  5. OXYTOCIN (FOR PITOCIN) [Concomitant]

REACTIONS (1)
  - No therapeutic response [None]
